FAERS Safety Report 18590004 (Version 1)
Quarter: 2020Q4

REPORT INFORMATION
  Report Type: Spontaneous
  Country: US (occurrence: US)
  Receive Date: 20201207
  Receipt Date: 20201207
  Transmission Date: 20210114
  Serious: Yes (Other)
  Sender: FDA-Public Use
  Company Number: None

PATIENT
  Age: 36 Year
  Sex: Female
  Weight: 54 kg

DRUGS (3)
  1. EFFEXOR [Concomitant]
     Active Substance: VENLAFAXINE HYDROCHLORIDE
  2. MAGNESIUM [Concomitant]
     Active Substance: MAGNESIUM
  3. ARMODAFINIL. [Suspect]
     Active Substance: ARMODAFINIL
     Indication: NARCOLEPSY
     Dosage: ?          QUANTITY:1 CAPSULE(S);?
     Route: 048
     Dates: start: 20200921, end: 20201104

REACTIONS (6)
  - Drug ineffective [None]
  - Depression [None]
  - Rash [None]
  - Neuralgia [None]
  - Anxiety [None]
  - Rash pruritic [None]

NARRATIVE: CASE EVENT DATE: 20201025
